FAERS Safety Report 10685448 (Version 1)
Quarter: 2014Q4

REPORT INFORMATION
  Report Type: Spontaneous
  Country: US (occurrence: US)
  Receive Date: 20141231
  Receipt Date: 20141231
  Transmission Date: 20150529
  Serious: Yes (Hospitalization, Other)
  Sender: FDA-Public Use
  Company Number: US-SA-2014SA178961

PATIENT
  Age: 54 Year
  Sex: Female

DRUGS (1)
  1. LASIX [Suspect]
     Active Substance: FUROSEMIDE
     Route: 065
     Dates: start: 2014

REACTIONS (10)
  - Intestinal perforation [Unknown]
  - Activities of daily living impaired [Unknown]
  - Abdominal distension [Unknown]
  - Dyskinesia [Unknown]
  - Feeling abnormal [Unknown]
  - Skin ulcer [Unknown]
  - Blindness [Unknown]
  - Abdominal pain upper [Unknown]
  - Hospitalisation [Unknown]
  - Peripheral swelling [Unknown]
